FAERS Safety Report 14610278 (Version 1)
Quarter: 2018Q1

REPORT INFORMATION
  Report Type: Spontaneous
  Country: GB (occurrence: GB)
  Receive Date: 20180307
  Receipt Date: 20180307
  Transmission Date: 20180509
  Serious: Yes (Other)
  Sender: FDA-Public Use
  Company Number: GB-NOVOPROD-579843

PATIENT
  Age: 73 Year
  Sex: Male
  Weight: 74 kg

DRUGS (7)
  1. FIASP [Suspect]
     Active Substance: INSULIN ASPART
     Indication: TYPE 1 DIABETES MELLITUS
     Dosage: TOTAL DAILY DOSE APPROXIMATELY 24-28UNITS
     Route: 058
     Dates: end: 20171225
  2. RAMIPRIL. [Concomitant]
     Active Substance: RAMIPRIL
     Dosage: 5 MG, QD
     Route: 065
  3. ASPIRIN                            /00002701/ [Concomitant]
     Active Substance: ASPIRIN
     Dosage: 75 MG, QD
     Route: 065
  4. SIMVASTATIN. [Concomitant]
     Active Substance: SIMVASTATIN
     Dosage: 20 MG, QD
     Route: 065
  5. LEVOTHYROXINE. [Concomitant]
     Active Substance: LEVOTHYROXINE
     Dosage: 125 ?G, QD
     Route: 065
  6. LEVEMIR PENFILL [Concomitant]
     Active Substance: INSULIN DETEMIR
     Dosage: 9 U, QD
     Route: 065
  7. AZOPT [Concomitant]
     Active Substance: BRINZOLAMIDE
     Dosage: EYE DROPS
     Route: 065

REACTIONS (2)
  - Blood urine present [Recovered/Resolved]
  - Alcohol interaction [Unknown]

NARRATIVE: CASE EVENT DATE: 20171224
